FAERS Safety Report 7642844-9 (Version None)
Quarter: 2011Q3

REPORT INFORMATION
  Report Type: 
  Country: None (occurrence: None)
  Receive Date: 20110728
  Receipt Date: 20110714
  Transmission Date: 20111222
  Serious: Yes (Other)
  Sender: FDA-Public Use
  Company Number: US-BAYER-2011-062261

PATIENT
  Sex: Female

DRUGS (4)
  1. COUMADIN [Suspect]
  2. DRONEDARONE HCL [Concomitant]
  3. ASPIRIN [Suspect]
  4. AMIODARONE HCL [Concomitant]

REACTIONS (3)
  - VOMITING [None]
  - RECTAL HAEMORRHAGE [None]
  - NAUSEA [None]
